FAERS Safety Report 7808153-X (Version None)
Quarter: 2011Q4

REPORT INFORMATION
  Report Type: 
  Country: None (occurrence: None)
  Receive Date: 20111011
  Receipt Date: 20110928
  Transmission Date: 20120403
  Serious: Yes (Hospitalization, Other)
  Sender: FDA-Public Use
  Company Number: SE-ROCHE-670602

PATIENT
  Sex: Female

DRUGS (3)
  1. PREDNISOLONE [Concomitant]
     Indication: RHEUMATOID ARTHRITIS
     Dosage: DOSING REGIMEN: 2.5 - 5 MG ONCE DAILY FROM JAN 2007, HAS NEVER BEEN WITHDRAWN
  2. MABTHERA [Suspect]
     Indication: RHEUMATOID ARTHRITIS
     Dosage: DOSE: 2X1000 MG
     Route: 042
  3. PREDNISOLONE [Concomitant]
     Dosage: FREQUENCY: DAILY

REACTIONS (6)
  - PERSONALITY CHANGE [None]
  - COLITIS ULCERATIVE [None]
  - JC VIRUS INFECTION [None]
  - ABNORMAL BEHAVIOUR [None]
  - PROGRESSIVE MULTIFOCAL LEUKOENCEPHALOPATHY [None]
  - CONFUSIONAL STATE [None]
